FAERS Safety Report 18399236 (Version 3)
Quarter: 2021Q1

REPORT INFORMATION
  Report Type: Spontaneous
  Country: US (occurrence: US)
  Receive Date: 20201019
  Receipt Date: 20210126
  Transmission Date: 20210419
  Serious: Yes (Other)
  Sender: FDA-Public Use
  Company Number: US-PFIZER INC-2020401353

PATIENT
  Age: 63 Year
  Sex: Female

DRUGS (3)
  1. IBRANCE [Suspect]
     Active Substance: PALBOCICLIB
     Dosage: 75 MG, DAILY
     Route: 048
     Dates: start: 20200508
  2. IBRANCE [Suspect]
     Active Substance: PALBOCICLIB
     Indication: BREAST CANCER FEMALE
     Dosage: 75 MG, 1X/DAY (QD X 21 DAYS)
     Dates: start: 20190717
  3. IBRANCE [Suspect]
     Active Substance: PALBOCICLIB
     Dosage: 75 MG, DAILY
     Route: 048

REACTIONS (9)
  - Tooth loss [Unknown]
  - Burning sensation [Not Recovered/Not Resolved]
  - Cataract [Not Recovered/Not Resolved]
  - Stomatitis [Unknown]
  - Dry eye [Not Recovered/Not Resolved]
  - Dry skin [Unknown]
  - Hot flush [Unknown]
  - Sleep disorder [Unknown]
  - Insomnia [Not Recovered/Not Resolved]

NARRATIVE: CASE EVENT DATE: 202012
